FAERS Safety Report 7196081-5 (Version None)
Quarter: 2010Q4

REPORT INFORMATION
  Report Type: 
  Country: None (occurrence: None)
  Receive Date: 20101223
  Receipt Date: 20101014
  Transmission Date: 20110411
  Serious: No
  Sender: FDA-Public Use
  Company Number: US-AMGEN-USASP2010000629

PATIENT

DRUGS (3)
  1. ENBREL [Suspect]
     Indication: PSORIATIC ARTHROPATHY
     Dosage: 50 MG, QWK
     Dates: start: 20080501, end: 20100801
  2. HUMIRA [Concomitant]
     Dosage: UNK
     Dates: start: 20100801
  3. GOLIMUMAB [Concomitant]

REACTIONS (2)
  - HANGOVER [None]
  - SKIN CHAPPED [None]
